FAERS Safety Report 9841207 (Version 1)
Quarter: 2013Q4

REPORT INFORMATION
  Report Type: Spontaneous
  Country: US (occurrence: None)
  Receive Date: 20131219
  Receipt Date: 20131219
  Transmission Date: 20140711
  Serious: Yes (Disabling)
  Sender: FDA-Public Use
  Company Number: 163-20785-10120426

PATIENT
  Age: 11 Year
  Sex: Male

DRUGS (5)
  1. THALOMID [Suspect]
     Indication: ARTERIOVENOUS MALFORMATION
     Dates: start: 20030730
  2. COLACE [Concomitant]
  3. SOMATOTROPIN(SOMATROPIN) [Concomitant]
  4. ABILIFY(ARIPIPRAZOLE) [Concomitant]
  5. FOCALIN(DEXMETHYLPHENIDATE HYDROCHLORIDE) [Concomitant]

REACTIONS (2)
  - Melaena [None]
  - Neutropenia [None]
